FAERS Safety Report 24540275 (Version 2)
Quarter: 2024Q4

REPORT INFORMATION
  Report Type: Spontaneous
  Country: FR (occurrence: FR)
  Receive Date: 20241023
  Receipt Date: 20241106
  Transmission Date: 20250115
  Serious: Yes (Other)
  Sender: TEVA
  Company Number: FR-TEVA-VS-3254601

PATIENT
  Age: 65 Year
  Sex: Female

DRUGS (3)
  1. CARBOPLATIN [Suspect]
     Active Substance: CARBOPLATIN
     Indication: Neuroendocrine carcinoma of the skin
     Dosage: RECEIVED THREE CYCLES
     Route: 065
     Dates: start: 20120403, end: 20120514
  2. HYDROCHLOROTHIAZIDE\TRIAMTERENE [Concomitant]
     Active Substance: HYDROCHLOROTHIAZIDE\TRIAMTERENE
     Indication: Hypertension
     Route: 065
  3. ETOPOSIDE [Suspect]
     Active Substance: ETOPOSIDE
     Indication: Neuroendocrine carcinoma of the skin
     Dosage: RECEIVED THREE CYCLES
     Route: 065
     Dates: start: 20120403, end: 20120514

REACTIONS (3)
  - Drug tolerance [Unknown]
  - Clostridium difficile colitis [Unknown]
  - Febrile neutropenia [Unknown]

NARRATIVE: CASE EVENT DATE: 20120101
